FAERS Safety Report 8424481-1 (Version None)
Quarter: 2012Q2

REPORT INFORMATION
  Report Type: 
  Country: None (occurrence: None)
  Receive Date: 20120610
  Receipt Date: 20120530
  Transmission Date: 20120825
  Serious: Yes (Other)
  Sender: FDA-Public Use
  Company Number: US-BRISTOL-MYERS SQUIBB COMPANY-16591323

PATIENT
  Age: 74 Year
  Sex: Male

DRUGS (12)
  1. MUCINEX [Concomitant]
  2. LISINOPRIL [Concomitant]
  3. NIFEDIPINE [Concomitant]
  4. SPRYCEL [Suspect]
     Indication: CHRONIC MYELOID LEUKAEMIA
     Route: 048
     Dates: start: 20100505
  5. TRAMADOL HCL [Concomitant]
  6. INTEGRA PLUS [Concomitant]
  7. METFORMIN HYDROCHLORIDE [Concomitant]
  8. ZOCOR [Concomitant]
  9. AMARYL [Concomitant]
  10. INTEGRA PLUS [Concomitant]
  11. ASPIRIN [Concomitant]
  12. CLONIDINE [Concomitant]

REACTIONS (5)
  - WEIGHT DECREASED [None]
  - ASTHENIA [None]
  - GAIT DISTURBANCE [None]
  - DYSARTHRIA [None]
  - INSOMNIA [None]
